FAERS Safety Report 12534573 (Version 2)
Quarter: 2016Q3

REPORT INFORMATION
  Report Type: Spontaneous
  Country: FR (occurrence: FR)
  Receive Date: 20160706
  Receipt Date: 20160804
  Transmission Date: 20161109
  Serious: No
  Sender: FDA-Public Use
  Company Number: FR-ALLERGAN-1662004US

PATIENT
  Age: 72 Year
  Sex: Male

DRUGS (1)
  1. NO SUSPECT ALLERGAN PRODUCT [Suspect]
     Active Substance: UNSPECIFIED INGREDIENT
     Indication: COLITIS ULCERATIVE
     Dosage: 2000 MG, QD
     Dates: end: 20120511

REACTIONS (1)
  - No adverse event [Unknown]
